FAERS Safety Report 8387868-1 (Version None)
Quarter: 2012Q2

REPORT INFORMATION
  Report Type: 
  Country: None (occurrence: None)
  Receive Date: 20120525
  Receipt Date: 20120516
  Transmission Date: 20120825
  Serious: Yes (Hospitalization, Disabling, Other)
  Sender: FDA-Public Use
  Company Number: US-ASTRAZENECA-2010SE10131

PATIENT
  Age: 57 Year
  Sex: Male

DRUGS (6)
  1. SEROQUEL XR [Suspect]
     Indication: PANIC ATTACK
     Route: 048
  2. SEROQUEL XR [Suspect]
     Indication: BIPOLAR DISORDER
     Route: 048
  3. SEROQUEL XR [Suspect]
     Route: 048
  4. SEROQUEL XR [Suspect]
     Indication: ANXIETY
     Route: 048
  5. SEROQUEL XR [Suspect]
     Route: 048
  6. SEROQUEL XR [Suspect]
     Route: 048

REACTIONS (8)
  - ADVERSE EVENT [None]
  - NAUSEA [None]
  - INTENTIONAL DRUG MISUSE [None]
  - BLINDNESS [None]
  - MOOD SWINGS [None]
  - TREMOR [None]
  - MALAISE [None]
  - ABDOMINAL DISCOMFORT [None]
